FAERS Safety Report 17478566 (Version 2)
Quarter: 2020Q1

REPORT INFORMATION
  Report Type: Spontaneous
  Country: AT (occurrence: AT)
  Receive Date: 20200228
  Receipt Date: 20200327
  Transmission Date: 20200409
  Serious: No
  Sender: FDA-Public Use
  Company Number: AT-BAYER-2020-029201

PATIENT
  Age: 34 Year
  Sex: Female

DRUGS (1)
  1. KYLEENA [Suspect]
     Active Substance: LEVONORGESTREL
     Indication: CONTRACEPTION
     Dosage: 17.5 ?G CONTINUOUSLY
     Route: 015
     Dates: start: 201701, end: 201809

REACTIONS (3)
  - Abdominal distension [Recovered/Resolved]
  - Hypomenorrhoea [None]
  - Flatulence [None]

NARRATIVE: CASE EVENT DATE: 2017
